FAERS Safety Report 8832248 (Version 2)
Quarter: 2012Q4

REPORT INFORMATION
  Report Type: 
  Country: JP (occurrence: JP)
  Receive Date: 20121009
  Receipt Date: 20121019
  Transmission Date: 20130627
  Serious: Yes (Death, Hospitalization)
  Sender: FDA-Public Use
  Company Number: JP-B.I. PHARMACEUTICALS,INC./RIDGEFIELD-2012-EU-05037GD

PATIENT
  Age: 68 Year
  Sex: Female

DRUGS (3)
  1. DABIGATRAN ETEXILATE [Suspect]
  2. HEPARIN [Suspect]
  3. WARFARIN [Suspect]

REACTIONS (3)
  - Sudden death [Fatal]
  - Platelet count decreased [Recovered/Resolved]
  - Nausea [Unknown]
